FAERS Safety Report 14881358 (Version 2)
Quarter: 2018Q2

REPORT INFORMATION
  Report Type: Spontaneous
  Country: FR (occurrence: FR)
  Receive Date: 20180511
  Receipt Date: 20180515
  Transmission Date: 20180711
  Serious: Yes (Other)
  Sender: FDA-Public Use
  Company Number: FR-SA-2018SA129582

PATIENT
  Age: 69 Year
  Sex: Female
  Weight: 84 kg

DRUGS (14)
  1. AMLODIPINE [Suspect]
     Active Substance: AMLODIPINE BESYLATE
     Route: 065
  2. INDAPAMIDE. [Suspect]
     Active Substance: INDAPAMIDE
     Route: 065
  3. LEVOTHYROXINE. [Concomitant]
     Active Substance: LEVOTHYROXINE
     Indication: HYPOTHYROIDISM
  4. VALSARTAN. [Suspect]
     Active Substance: VALSARTAN
     Route: 065
  5. TELMISARTAN. [Interacting]
     Active Substance: TELMISARTAN
     Route: 065
  6. CILAZAPRIL [Suspect]
     Active Substance: CILAZAPRIL ANHYDROUS
     Route: 065
  7. PERINDOPRIL [Suspect]
     Active Substance: PERINDOPRIL
     Route: 065
  8. METOPROLOL. [Suspect]
     Active Substance: METOPROLOL
     Route: 048
  9. ACETYLSALICYLIC ACID [Interacting]
     Active Substance: ASPIRIN
     Route: 065
  10. RAMIPRIL. [Suspect]
     Active Substance: RAMIPRIL
     Route: 048
  11. LERCANIDIPINE [Suspect]
     Active Substance: LERCANIDIPINE
     Route: 065
  12. CLOPIDOGREL [Concomitant]
     Active Substance: CLOPIDOGREL BISULFATE
     Route: 048
  13. SIMVASTATIN. [Suspect]
     Active Substance: SIMVASTATIN
     Route: 065
  14. CANDESARTAN. [Concomitant]
     Active Substance: CANDESARTAN

REACTIONS (11)
  - Confusional state [Unknown]
  - Chest pain [Unknown]
  - Myalgia [Unknown]
  - Labile hypertension [Unknown]
  - Oedema peripheral [Unknown]
  - Tinnitus [Unknown]
  - Labelled drug-drug interaction medication error [Unknown]
  - Muscle spasms [Unknown]
  - Cough [Unknown]
  - Thrombocytopenia [Unknown]
  - Drug intolerance [Unknown]
